FAERS Safety Report 7828626-3 (Version None)
Quarter: 2011Q4

REPORT INFORMATION
  Report Type: 
  Country: None (occurrence: None)
  Receive Date: 20111020
  Receipt Date: 20101217
  Transmission Date: 20120403
  Serious: Yes (Other)
  Sender: FDA-Public Use
  Company Number: PHHY2010JP86138

PATIENT
  Age: 61 Year
  Sex: Male

DRUGS (2)
  1. FLUOROURACIL [Suspect]
     Indication: CHEMOTHERAPY
  2. CISPLATIN [Suspect]
     Indication: CHEMOTHERAPY
     Dosage: 80 MG/M2, UNK

REACTIONS (2)
  - NAUSEA [None]
  - INAPPROPRIATE ANTIDIURETIC HORMONE SECRETION [None]
